FAERS Safety Report 17943961 (Version 2)
Quarter: 2020Q3

REPORT INFORMATION
  Report Type: Report from Study
  Country: IT (occurrence: IT)
  Receive Date: 20200625
  Receipt Date: 20200709
  Transmission Date: 20201103
  Serious: Yes (Hospitalization)
  Sender: FDA-Public Use
  Company Number: IT-TEVA-2020-IT-1790660

PATIENT
  Age: 89 Year
  Sex: Female

DRUGS (6)
  1. LERCANIDIPINE [Concomitant]
     Active Substance: LERCANIDIPINE
  2. LORAZEPAM. [Concomitant]
     Active Substance: LORAZEPAM
  3. XARELTO [Concomitant]
     Active Substance: RIVAROXABAN
  4. LANOXIN [Suspect]
     Active Substance: DIGOXIN
     Indication: ISCHAEMIC HEART DISEASE PROPHYLAXIS
  5. ATORVASTATIN [Concomitant]
     Active Substance: ATORVASTATIN
  6. BISOPROLOL FUMARATE. [Suspect]
     Active Substance: BISOPROLOL FUMARATE
     Route: 065

REACTIONS (2)
  - Bradyarrhythmia [Unknown]
  - Sopor [Unknown]

NARRATIVE: CASE EVENT DATE: 20200308
